FAERS Safety Report 6500265-6 (Version None)
Quarter: 2009Q4

REPORT INFORMATION
  Report Type: 
  Country: None (occurrence: None)
  Receive Date: 20091127
  Receipt Date: 20090513
  Transmission Date: 20100525
  Serious: Yes (Other)
  Sender: FDA-Public Use
  Company Number: WAES 0608USA04482

PATIENT
  Age: 60 Year
  Sex: Female

DRUGS (3)
  1. FOSAMAX [Suspect]
     Indication: OSTEOPOROSIS
     Dosage: PO
     Route: 048
     Dates: start: 19981101, end: 20000701
  2. ACTONEL [Suspect]
     Indication: OSTEOPOROSIS
     Dosage: WKY
     Dates: start: 20000701, end: 20060601
  3. ESTRACE [Concomitant]

REACTIONS (9)
  - ADVERSE DRUG REACTION [None]
  - GASTROINTESTINAL DISORDER [None]
  - HYPOAESTHESIA [None]
  - ORAL PAIN [None]
  - OSTEONECROSIS [None]
  - PERIODONTITIS [None]
  - RESORPTION BONE INCREASED [None]
  - TOOTH INFECTION [None]
  - TOOTH LOSS [None]
